FAERS Safety Report 14158678 (Version 2)
Quarter: 2017Q4

REPORT INFORMATION
  Report Type: Spontaneous
  Country: NL (occurrence: NL)
  Receive Date: 20171103
  Receipt Date: 20171120
  Transmission Date: 20180321
  Serious: Yes (Death)
  Sender: FDA-Public Use
  Company Number: NL-HORIZON-PRE-0340-2017

PATIENT
  Age: 30 Year
  Sex: Male

DRUGS (2)
  1. THALIDOMIDE [Suspect]
     Active Substance: THALIDOMIDE
     Indication: TYPE 2 LEPRA REACTION
  2. PREDNISONE. [Suspect]
     Active Substance: PREDNISONE
     Indication: TYPE 2 LEPRA REACTION

REACTIONS (2)
  - Hepatic necrosis [Fatal]
  - Varicella zoster virus infection [Fatal]
